FAERS Safety Report 13471111 (Version 5)
Quarter: 2018Q1

REPORT INFORMATION
  Report Type: Spontaneous
  Country: CA (occurrence: CA)
  Receive Date: 20170424
  Receipt Date: 20180223
  Transmission Date: 20180508
  Serious: Yes (Other)
  Sender: FDA-Public Use
  Company Number: CA-CONCORDIA PHARMACEUTICALS INC.-GSH201704-002544

PATIENT
  Age: 68 Year
  Sex: Female

DRUGS (13)
  1. PLAQUENIL [Suspect]
     Active Substance: HYDROXYCHLOROQUINE SULFATE
     Indication: PRODUCT USED FOR UNKNOWN INDICATION
     Route: 048
     Dates: end: 201312
  2. ENBREL [Suspect]
     Active Substance: ETANERCEPT
     Indication: RHEUMATOID ARTHRITIS
     Route: 065
     Dates: start: 20120312, end: 201404
  3. VITAMIN D [Concomitant]
     Active Substance: CHOLECALCIFEROL
  4. ENBREL [Suspect]
     Active Substance: ETANERCEPT
     Route: 065
     Dates: start: 20150408, end: 201702
  5. METHOTREXATE. [Concomitant]
     Active Substance: METHOTREXATE
     Dates: start: 201711
  6. ONDANSETRON [Concomitant]
     Active Substance: ONDANSETRON
  7. ENBREL [Suspect]
     Active Substance: ETANERCEPT
     Route: 065
     Dates: start: 20150408, end: 201702
  8. PREDNISONE. [Concomitant]
     Active Substance: PREDNISONE
  9. VITAMIN B6 [Concomitant]
     Active Substance: PYRIDOXINE HYDROCHLORIDE
  10. DEXAMETHASONE. [Concomitant]
     Active Substance: DEXAMETHASONE
  11. ENBREL [Suspect]
     Active Substance: ETANERCEPT
     Dates: end: 20180101
  12. FOLIC ACID. [Concomitant]
     Active Substance: FOLIC ACID
  13. ENBREL [Suspect]
     Active Substance: ETANERCEPT
     Route: 065
     Dates: start: 201711

REACTIONS (15)
  - Nasopharyngitis [Unknown]
  - Influenza [Unknown]
  - Lung infection [Unknown]
  - Ocular toxicity [Not Recovered/Not Resolved]
  - Pulmonary mass [Unknown]
  - Rheumatoid arthritis [Not Recovered/Not Resolved]
  - Vision blurred [Recovered/Resolved]
  - Lung neoplasm malignant [Not Recovered/Not Resolved]
  - Ear pain [Unknown]
  - Lymphadenopathy [Unknown]
  - Drug effect incomplete [Unknown]
  - Pneumonia [Unknown]
  - Facial pain [Unknown]
  - Productive cough [Unknown]
  - Sputum discoloured [Unknown]

NARRATIVE: CASE EVENT DATE: 201311
